FAERS Safety Report 8831070 (Version 1)
Quarter: 2012Q4

REPORT INFORMATION
  Report Type: 
  Country: FR (occurrence: FR)
  Receive Date: 20121009
  Receipt Date: 20121009
  Transmission Date: 20130627
  Serious: Yes (Hospitalization)
  Sender: FDA-Public Use
  Company Number: PHHY2012FR088087

PATIENT
  Age: 63 Year
  Sex: Male

DRUGS (7)
  1. NEORAL [Suspect]
     Indication: HEPATITIS CHOLESTATIC
     Route: 048
     Dates: start: 20101105, end: 20120726
  2. TACROLIMUS [Concomitant]
     Dates: start: 20120726
  3. KARDEGIC [Concomitant]
     Dosage: 75 mg, UNK
  4. AMLODIPINE [Concomitant]
     Dosage: 5 mg, UNK
  5. ZOPICLONE [Concomitant]
     Dosage: 7.5 mg, UNK
  6. ESOMEPRAZOLE [Concomitant]
     Dosage: 20 mg, UNK
  7. ATARAX [Concomitant]
     Dosage: 25 mg, UNK

REACTIONS (6)
  - Arthralgia [Recovered/Resolved]
  - Back pain [Unknown]
  - Neck pain [Unknown]
  - Axonal neuropathy [Recovering/Resolving]
  - Myalgia [Recovered/Resolved]
  - Musculoskeletal stiffness [Unknown]
